FAERS Safety Report 6226332-2 (Version None)
Quarter: 2009Q2

REPORT INFORMATION
  Report Type: 
  Country: None (occurrence: None)
  Receive Date: 20090612
  Receipt Date: 20090109
  Transmission Date: 20091009
  Serious: No
  Sender: FDA-Public Use
  Company Number: US-PFIZER INC-2009153909

PATIENT
  Sex: Male

DRUGS (1)
  1. LIPITOR [Suspect]

REACTIONS (1)
  - GROIN PAIN [None]
